FAERS Safety Report 15035472 (Version 2)
Quarter: 2018Q2

REPORT INFORMATION
  Report Type: Spontaneous
  Country: IT (occurrence: IT)
  Receive Date: 20180620
  Receipt Date: 20180626
  Transmission Date: 20180711
  Serious: Yes (Hospitalization)
  Sender: FDA-Public Use
  Company Number: IT-ENDO PHARMACEUTICALS INC-2018-039766

PATIENT
  Age: 16 Year
  Sex: Male
  Weight: 76.7 kg

DRUGS (1)
  1. DELATESTRYL [Suspect]
     Active Substance: TESTOSTERONE ENANTHATE
     Indication: PRIMARY HYPOGONADISM
     Dosage: 200 MG, MONTHLY
     Route: 030

REACTIONS (1)
  - Cholelithiasis [Recovered/Resolved]
